FAERS Safety Report 4475842-7 (Version None)
Quarter: 2004Q3

REPORT INFORMATION
  Report Type: 
  Country: None (occurrence: None)
  Receive Date: 20040923
  Receipt Date: 20040709
  Transmission Date: 20050211
  Serious: No
  Sender: FDA-Public Use
  Company Number: USA040772226

PATIENT
  Age: 78 Year
  Sex: Female
  Weight: 66 kg

DRUGS (7)
  1. FORTEO [Suspect]
     Indication: OSTEOPOROSIS
     Dosage: 20 UG DAY
     Dates: start: 20040201
  2. ADVAIR DISKUS 100/50 [Concomitant]
  3. SINGULAIR (MONTELUKAST) [Concomitant]
  4. SYNTHROID [Concomitant]
  5. ZYRTEK (CETIRIZINE HYDROCHLORIDE) [Concomitant]
  6. THEOPHYLLINE [Concomitant]
  7. DOSTINEX [Concomitant]

REACTIONS (3)
  - ASTHENIA [None]
  - CONSTIPATION [None]
  - PAIN IN EXTREMITY [None]
